FAERS Safety Report 13204458 (Version 1)
Quarter: 2017Q1

REPORT INFORMATION
  Report Type: Spontaneous
  Country: DE (occurrence: DE)
  Receive Date: 20170209
  Receipt Date: 20170209
  Transmission Date: 20170428
  Serious: Yes (Hospitalization)
  Sender: FDA-Public Use
  Company Number: DE-ABBVIE-17P-062-1867099-00

PATIENT
  Age: 71 Year
  Sex: Male

DRUGS (1)
  1. HUMIRA [Suspect]
     Active Substance: ADALIMUMAB
     Indication: PSORIATIC ARTHROPATHY
     Route: 058
     Dates: start: 2015, end: 20170101

REACTIONS (3)
  - C-reactive protein increased [Recovering/Resolving]
  - Dry eye [Recovering/Resolving]
  - Gouty arthritis [Recovering/Resolving]

NARRATIVE: CASE EVENT DATE: 20170106
